FAERS Safety Report 5945991-2 (Version None)
Quarter: 2008Q4

REPORT INFORMATION
  Report Type: 
  Country: None (occurrence: None)
  Receive Date: 20081106
  Receipt Date: 20081021
  Transmission Date: 20090506
  Serious: Yes (Hospitalization)
  Sender: FDA-Public Use
  Company Number: DSA_32594_2008

PATIENT
  Age: 63 Year
  Sex: Male

DRUGS (2)
  1. DILTIAZEM HYDROCHLORIDE [Suspect]
     Indication: BLOOD PRESSURE INADEQUATELY CONTROLLED
     Dosage: (100 MG, ORAL)
     Route: 048
     Dates: start: 20070515
  2. NIFEDIPINE [Suspect]
     Indication: DRUG USE FOR UNKNOWN INDICATION
     Dosage: (DF)

REACTIONS (7)
  - BLOOD PRESSURE DIASTOLIC DECREASED [None]
  - BUNDLE BRANCH BLOCK [None]
  - CARDIAC ARREST [None]
  - CONVULSION [None]
  - DRUG INTERACTION [None]
  - DRUG LEVEL INCREASED [None]
  - NODAL RHYTHM [None]
